FAERS Safety Report 25783404 (Version 1)
Quarter: 2025Q3

REPORT INFORMATION
  Report Type: Report from Study
  Country: CA (occurrence: CA)
  Receive Date: 20250910
  Receipt Date: 20250910
  Transmission Date: 20251020
  Serious: Yes (Other)
  Sender: ABBVIE
  Company Number: CA-ABBVIE-6441632

PATIENT
  Age: 59 Year
  Sex: Male
  Weight: 72.1 kg

DRUGS (2)
  1. SKYRIZI [Suspect]
     Active Substance: RISANKIZUMAB-RZAA
     Indication: Crohn^s disease
     Route: 058
  2. SKYRIZI [Suspect]
     Active Substance: RISANKIZUMAB-RZAA
     Route: 042

REACTIONS (9)
  - Pulmonary oedema [Unknown]
  - Pneumonia [Unknown]
  - Crohn^s disease [Unknown]
  - Colitis [Unknown]
  - Arthralgia [Unknown]
  - Ocular hyperaemia [Unknown]
  - Eye irritation [Unknown]
  - Furuncle [Recovered/Resolved]
  - Fistula [Unknown]

NARRATIVE: CASE EVENT DATE: 20250601
